FAERS Safety Report 15154636 (Version 2)
Quarter: 2018Q4

REPORT INFORMATION
  Report Type: Spontaneous
  Country: US (occurrence: US)
  Receive Date: 20180717
  Receipt Date: 20181001
  Transmission Date: 20190204
  Serious: Yes (Hospitalization, Other)
  Sender: FDA-Public Use
  Company Number: US-SA-2018SA191773

PATIENT
  Age: 68 Year
  Sex: Female

DRUGS (1)
  1. AUBAGIO [Suspect]
     Active Substance: TERIFLUNOMIDE
     Indication: MULTIPLE SCLEROSIS
     Dosage: UNK, UNK
     Dates: start: 201704

REACTIONS (4)
  - Muscular weakness [Unknown]
  - Cholecystectomy [Unknown]
  - Product dose omission [Unknown]
  - Muscle strain [Unknown]

NARRATIVE: CASE EVENT DATE: 20180620
